FAERS Safety Report 19847193 (Version 1)
Quarter: 2021Q3

REPORT INFORMATION
  Report Type: Spontaneous
  Country: US (occurrence: US)
  Receive Date: 20210917
  Receipt Date: 20210917
  Transmission Date: 20211014
  Serious: Yes (Other)
  Sender: FDA-Public Use
  Company Number: US-DRREDDYS-SPO/USA/21/0140015

PATIENT
  Sex: Female

DRUGS (3)
  1. LORAZEPAM INJECTION USP, 2 MG/ML AND 4 MG/ML [Suspect]
     Active Substance: LORAZEPAM
     Indication: SOMNAMBULISM
  2. LORAZEPAM INJECTION USP, 2 MG/ML AND 4 MG/ML [Suspect]
     Active Substance: LORAZEPAM
     Indication: SLEEP TALKING
  3. LORAZEPAM INJECTION USP, 2 MG/ML AND 4 MG/ML [Suspect]
     Active Substance: LORAZEPAM
     Indication: SLEEP TERROR

REACTIONS (2)
  - Hypnagogic hallucination [Unknown]
  - Hypnopompic hallucination [Unknown]
